FAERS Safety Report 9286048 (Version 3)
Quarter: 2013Q3

REPORT INFORMATION
  Report Type: Spontaneous
  Country: TR (occurrence: TR)
  Receive Date: 20130513
  Receipt Date: 20130709
  Transmission Date: 20140515
  Serious: Yes (Hospitalization, Other)
  Sender: FDA-Public Use
  Company Number: TR-ASTRAZENECA-2013SE30955

PATIENT
  Age: 72 Year
  Sex: Female

DRUGS (12)
  1. BELOC ZOK [Suspect]
     Indication: TACHYCARDIA
     Route: 048
     Dates: end: 201301
  2. BELOC ZOK [Suspect]
     Indication: ARRHYTHMIA
     Route: 048
     Dates: end: 201301
  3. BELOC ZOK [Suspect]
     Indication: HYPERTENSION
     Route: 048
     Dates: end: 201301
  4. BELOC ZOK [Suspect]
     Indication: TACHYCARDIA
     Route: 048
     Dates: start: 201301, end: 20130430
  5. BELOC ZOK [Suspect]
     Indication: ARRHYTHMIA
     Route: 048
     Dates: start: 201301, end: 20130430
  6. BELOC ZOK [Suspect]
     Indication: HYPERTENSION
     Route: 048
     Dates: start: 201301, end: 20130430
  7. BELOC ZOK [Suspect]
     Indication: TACHYCARDIA
     Route: 048
     Dates: start: 20130430, end: 201305
  8. BELOC ZOK [Suspect]
     Indication: ARRHYTHMIA
     Route: 048
     Dates: start: 20130430, end: 201305
  9. BELOC ZOK [Suspect]
     Indication: HYPERTENSION
     Route: 048
     Dates: start: 20130430, end: 201305
  10. BELOC ZOK [Suspect]
     Indication: TACHYCARDIA
     Route: 048
     Dates: start: 201305
  11. BELOC ZOK [Suspect]
     Indication: ARRHYTHMIA
     Route: 048
     Dates: start: 201305
  12. BELOC ZOK [Suspect]
     Indication: HYPERTENSION
     Route: 048
     Dates: start: 201305

REACTIONS (7)
  - Hip fracture [Recovering/Resolving]
  - Pathological fracture [Unknown]
  - Cough [Not Recovered/Not Resolved]
  - Osteoporosis [Unknown]
  - Tachycardia [Recovered/Resolved]
  - Arrhythmia [Recovered/Resolved]
  - Therapeutic response decreased [Unknown]
